FAERS Safety Report 25737276 (Version 2)
Quarter: 2025Q4

REPORT INFORMATION
  Report Type: Spontaneous
  Country: US (occurrence: US)
  Receive Date: 20250828
  Receipt Date: 20251126
  Transmission Date: 20260117
  Serious: Yes (Other)
  Sender: COOPERSURGICAL
  Company Number: US-COOPERSURGICAL, INC.-2025CPS006194

PATIENT
  Sex: Female
  Weight: 68.027 kg

DRUGS (1)
  1. PARAGARD T 380A [Suspect]
     Active Substance: COPPER
     Indication: Contraception
     Dosage: UNK
     Route: 015
     Dates: start: 20150301

REACTIONS (16)
  - Surgery [Recovered/Resolved]
  - Internal haemorrhage [Recovered/Resolved]
  - Uterine injury [Not Recovered/Not Resolved]
  - Device breakage [Recovered/Resolved]
  - Foreign body in reproductive tract [Recovered/Resolved]
  - Complication of device removal [Recovered/Resolved]
  - Embedded device [Recovered/Resolved]
  - Stress [Unknown]
  - Emotional distress [Not Recovered/Not Resolved]
  - Psychological trauma [Not Recovered/Not Resolved]
  - Anxiety [Unknown]
  - Pelvic pain [Recovered/Resolved]
  - Abdominal pain [Recovered/Resolved]
  - Pain [Recovered/Resolved]
  - Device use issue [Recovered/Resolved]
  - Off label use [Unknown]

NARRATIVE: CASE EVENT DATE: 20250101
